FAERS Safety Report 6412049-8 (Version None)
Quarter: 2009Q4

REPORT INFORMATION
  Report Type: 
  Country: None (occurrence: None)
  Receive Date: 20091023
  Receipt Date: 20091020
  Transmission Date: 20100525
  Serious: Yes (Life-Threatening)
  Sender: FDA-Public Use
  Company Number: US-ASTRAZENECA-2009SE21256

PATIENT
  Age: 22263 Day
  Sex: Female
  Weight: 107 kg

DRUGS (1)
  1. SYMBICORT [Suspect]
     Route: 055
     Dates: start: 20090401

REACTIONS (1)
  - LUNG NEOPLASM MALIGNANT [None]
